FAERS Safety Report 18807682 (Version 1)
Quarter: 2021Q1

REPORT INFORMATION
  Report Type: Report from Study
  Country: None (occurrence: US)
  Receive Date: 20210129
  Receipt Date: 20210129
  Transmission Date: 20210419
  Serious: Yes (Other)
  Sender: FDA-Public Use
  Company Number: US-ABBVIE-20K-163-3626665-00

PATIENT
  Age: 48 Year
  Sex: Female

DRUGS (5)
  1. HUMIRA [Suspect]
     Active Substance: ADALIMUMAB
     Indication: RHEUMATOID ARTHRITIS
     Route: 058
     Dates: start: 20200723, end: 2020
  2. HUMIRA [Suspect]
     Active Substance: ADALIMUMAB
     Route: 058
     Dates: start: 20210120
  3. HUMIRA [Suspect]
     Active Substance: ADALIMUMAB
     Route: 058
     Dates: end: 202101
  4. VICODIN [Concomitant]
     Active Substance: ACETAMINOPHEN\HYDROCODONE BITARTRATE
     Indication: PRODUCT USED FOR UNKNOWN INDICATION
  5. CYMBALTA [Concomitant]
     Active Substance: DULOXETINE HYDROCHLORIDE
     Indication: PRODUCT USED FOR UNKNOWN INDICATION

REACTIONS (23)
  - Muscle rupture [Unknown]
  - Mobility decreased [Recovering/Resolving]
  - Osteoarthritis [Unknown]
  - Rash [Unknown]
  - Arthralgia [Unknown]
  - Knee arthroplasty [Unknown]
  - Tendon rupture [Unknown]
  - Muscular weakness [Unknown]
  - Swelling face [Unknown]
  - Pain [Unknown]
  - Loss of personal independence in daily activities [Unknown]
  - Erythema [Unknown]
  - Fatigue [Unknown]
  - Pain in extremity [Unknown]
  - Hypoaesthesia [Unknown]
  - Joint range of motion decreased [Recovering/Resolving]
  - Headache [Unknown]
  - Abdominal pain [Not Recovered/Not Resolved]
  - Gait disturbance [Unknown]
  - Diarrhoea [Not Recovered/Not Resolved]
  - Arthritis [Unknown]
  - Knee arthroplasty [Unknown]
  - Drug ineffective [Recovering/Resolving]

NARRATIVE: CASE EVENT DATE: 2020
